FAERS Safety Report 22173391 (Version 1)
Quarter: 2023Q2

REPORT INFORMATION
  Report Type: Spontaneous
  Country: GB (occurrence: GB)
  Receive Date: 20230404
  Receipt Date: 20230404
  Transmission Date: 20230721
  Serious: Yes (Other)
  Sender: FDA-Public Use
  Company Number: GB-ELI_LILLY_AND_COMPANY-GB202303015415

PATIENT
  Age: 55 Year
  Sex: Female

DRUGS (2)
  1. ABEMACICLIB [Suspect]
     Active Substance: ABEMACICLIB
     Indication: Product used for unknown indication
     Dosage: 150 MG, UNKNOWN
     Route: 065
  2. ABEMACICLIB [Suspect]
     Active Substance: ABEMACICLIB
     Dosage: 100 MG, BID
     Route: 065

REACTIONS (3)
  - Syncope [Unknown]
  - Atrioventricular block first degree [Unknown]
  - Fatigue [Unknown]

NARRATIVE: CASE EVENT DATE: 20230201
